FAERS Safety Report 18569985 (Version 1)
Quarter: 2020Q4

REPORT INFORMATION
  Report Type: Spontaneous
  Country: US (occurrence: US)
  Receive Date: 20201202
  Receipt Date: 20201202
  Transmission Date: 20210114
  Serious: No
  Sender: FDA-Public Use
  Company Number: None

PATIENT
  Age: 57 Year
  Sex: Male

DRUGS (1)
  1. OLUMIANT [Suspect]
     Active Substance: BARICITINIB
     Indication: RHEUMATOID ARTHRITIS
     Route: 048
     Dates: start: 20201026

REACTIONS (4)
  - Drug ineffective [None]
  - Headache [None]
  - Rheumatoid arthritis [None]
  - Constipation [None]

NARRATIVE: CASE EVENT DATE: 20201026
